FAERS Safety Report 5019352-7 (Version None)
Quarter: 2006Q2

REPORT INFORMATION
  Report Type: 
  Country: None (occurrence: None)
  Receive Date: 20060531
  Receipt Date: 20060522
  Transmission Date: 20061013
  Serious: Yes (Other)
  Sender: FDA-Public Use
  Company Number: 2006061576

PATIENT
  Age: 86 Year
  Sex: Female

DRUGS (7)
  1. AROMASIN [Suspect]
     Indication: BREAST CANCER FEMALE
     Dosage: 25 MG (25 MG, DAILY) ORAL
     Route: 048
     Dates: start: 20050524, end: 20060508
  2. ASPIRIN [Concomitant]
  3. AMITRIPTYLINE HCL [Concomitant]
  4. GABAPENTIN [Concomitant]
  5. BENDROFLUAZIDE (BENDROFLUMETHIAZIDE) [Concomitant]
  6. PERINDOPRIL ERUMINE [Concomitant]
  7. TEMAZEPAM [Concomitant]

REACTIONS (1)
  - VAGINAL HAEMORRHAGE [None]
